FAERS Safety Report 20258108 (Version 6)
Quarter: 2023Q2

REPORT INFORMATION
  Report Type: Spontaneous
  Country: PT (occurrence: PT)
  Receive Date: 20211230
  Receipt Date: 20230511
  Transmission Date: 20230721
  Serious: Yes (Death, Hospitalization)
  Sender: FDA-Public Use
  Company Number: PT-PFIZER INC-202101659248

PATIENT
  Age: 68 Year
  Sex: Female

DRUGS (11)
  1. VORICONAZOLE [Suspect]
     Active Substance: VORICONAZOLE
     Indication: Aspergillus infection
     Dosage: 600 MILLIGRAM, QD (300 MG, EVERY 12 HOURS)
     Route: 065
  2. VORICONAZOLE [Suspect]
     Active Substance: VORICONAZOLE
     Indication: Bronchopulmonary aspergillosis
  3. VORICONAZOLE [Suspect]
     Active Substance: VORICONAZOLE
     Indication: COVID-19
  4. DEXAMETHASONE [Suspect]
     Active Substance: DEXAMETHASONE
     Indication: COVID-19 pneumonia
     Dosage: 16 MILLIGRAM, QD
     Route: 042
  5. MEROPENEM [Suspect]
     Active Substance: MEROPENEM
     Indication: COVID-19
     Dosage: 3 GRAM, QD (1 G, EVERY 8 HOURS)
     Route: 065
  6. MEROPENEM [Suspect]
     Active Substance: MEROPENEM
     Indication: Bronchopulmonary aspergillosis
  7. LINEZOLID [Suspect]
     Active Substance: LINEZOLID
     Indication: COVID-19
     Dosage: 1200 MILLIGRAM, QD (600 MG, EVERY 12 HOURS)
     Route: 065
  8. LINEZOLID [Suspect]
     Active Substance: LINEZOLID
     Indication: Bronchopulmonary aspergillosis
  9. PREDNISOLONE [Suspect]
     Active Substance: PREDNISOLONE
     Indication: COVID-19 pneumonia
     Dosage: 20 MILLIGRAM, QD
     Route: 048
  10. PIPERACILLIN AND TAZOBACTAM [Concomitant]
     Active Substance: PIPERACILLIN SODIUM\TAZOBACTAM SODIUM
     Indication: Enterobacter infection
     Dosage: 4.5 MILLIGRAM, (8 HOURS)
     Route: 065
  11. PIPERACILLIN AND TAZOBACTAM [Concomitant]
     Active Substance: PIPERACILLIN SODIUM\TAZOBACTAM SODIUM
     Indication: Tracheobronchitis

REACTIONS (8)
  - Multiple organ dysfunction syndrome [Fatal]
  - Bronchopulmonary aspergillosis [Fatal]
  - Drug ineffective [Fatal]
  - Organ failure [Fatal]
  - Drug ineffective for unapproved indication [Fatal]
  - Off label use [Fatal]
  - Enterobacter infection [Recovering/Resolving]
  - Tracheobronchitis [Recovering/Resolving]
